FAERS Safety Report 6413336-X (Version None)
Quarter: 2009Q4

REPORT INFORMATION
  Report Type: 
  Country: None (occurrence: None)
  Receive Date: 20091026
  Receipt Date: 20091009
  Transmission Date: 20100525
  Serious: No
  Sender: FDA-Public Use
  Company Number: BR-ROCHE-663025

PATIENT
  Sex: Female
  Weight: 64 kg

DRUGS (1)
  1. TAMIFLU [Suspect]
     Indication: PROPHYLAXIS
     Dosage: 8/8 H
     Route: 048
     Dates: start: 20090801, end: 20090801

REACTIONS (2)
  - NO ADVERSE EVENT [None]
  - PREGNANCY [None]
